FAERS Safety Report 9144359 (Version 3)
Quarter: 2013Q1

REPORT INFORMATION
  Report Type: Report from Study
  Country: DE (occurrence: DE)
  Receive Date: 20130306
  Receipt Date: 20130318
  Transmission Date: 20140127
  Serious: Yes (Hospitalization)
  Sender: FDA-Public Use
  Company Number: DE-ABBOTT-13P-062-1040516-00

PATIENT
  Age: 20 None
  Sex: Female
  Weight: 71 kg

DRUGS (1)
  1. HUMIRA [Suspect]
     Indication: CROHN^S DISEASE
     Route: 058
     Dates: start: 20121109, end: 20130104

REACTIONS (4)
  - Pyrexia [Recovered/Resolved]
  - Abdominal lymphadenopathy [Recovered/Resolved]
  - Abdominal pain [Recovered/Resolved]
  - Drug ineffective [Not Recovered/Not Resolved]
